FAERS Safety Report 9239199 (Version 2)
Quarter: 2013Q2

REPORT INFORMATION
  Report Type: Spontaneous
  Country: FR (occurrence: FR)
  Receive Date: 20130418
  Receipt Date: 20130422
  Transmission Date: 20140414
  Serious: Yes (Hospitalization)
  Sender: FDA-Public Use
  Company Number: FR-ROCHE-1213896

PATIENT
  Age: 92 Year
  Sex: Female

DRUGS (15)
  1. ROCEPHINE [Suspect]
     Indication: BRONCHITIS
     Route: 042
     Dates: start: 20130111, end: 20130119
  2. PREVISCAN [Suspect]
     Indication: ATRIAL FIBRILLATION
     Route: 048
     Dates: start: 20130111
  3. PREVISCAN [Suspect]
     Route: 048
  4. CORDARONE [Suspect]
     Indication: ATRIAL FIBRILLATION
     Route: 048
     Dates: start: 20130111
  5. CORDARONE [Suspect]
     Dosage: REDUCED
     Route: 048
  6. AUGMENTIN [Interacting]
     Indication: BRONCHITIS
     Route: 048
     Dates: start: 20130111, end: 20130119
  7. PERINDOPRIL [Interacting]
     Indication: HYPERTENSION
     Route: 048
  8. IMOVANE [Concomitant]
     Route: 048
     Dates: start: 20130111
  9. TEMESTA [Concomitant]
     Route: 048
     Dates: start: 20130111
  10. ATROVENT [Concomitant]
     Route: 055
     Dates: start: 20130111
  11. LEVOTHYROX [Concomitant]
     Route: 048
  12. ATENOLOL [Concomitant]
     Route: 048
     Dates: start: 20130111
  13. DAFALGAN [Concomitant]
     Route: 065
  14. SERESTA [Concomitant]
  15. COVERSYL [Concomitant]
     Route: 065

REACTIONS (4)
  - Renal failure [Recovered/Resolved]
  - Hyperkalaemia [Recovered/Resolved]
  - Diarrhoea [Unknown]
  - Drug interaction [Unknown]
